FAERS Safety Report 11452543 (Version 1)
Quarter: 2015Q3

REPORT INFORMATION
  Report Type: Spontaneous
  Country: US (occurrence: US)
  Receive Date: 20150903
  Receipt Date: 20150903
  Transmission Date: 20151125
  Serious: No
  Sender: FDA-Public Use
  Company Number: US-ROCHE-1086365

PATIENT
  Sex: Female

DRUGS (3)
  1. PEGASYS [Suspect]
     Active Substance: PEGINTERFERON ALFA-2A
     Indication: CHRONIC HEPATITIS C
     Route: 058
     Dates: start: 20120606
  2. TELAPREVIR [Suspect]
     Active Substance: TELAPREVIR
     Indication: CHRONIC HEPATITIS C
     Route: 065
     Dates: start: 20120606
  3. RIBASPHERE [Suspect]
     Active Substance: RIBAVIRIN
     Indication: CHRONIC HEPATITIS C
     Dosage: DIVIDED DOSES ORALLY FOR 24-48 WEEK LENGTH OF THERAPY
     Route: 048
     Dates: start: 20120606

REACTIONS (8)
  - Fatigue [Unknown]
  - Anaemia [Unknown]
  - Temperature intolerance [Unknown]
  - Disturbance in attention [Unknown]
  - Dyspnoea exertional [Unknown]
  - Memory impairment [Unknown]
  - Feeling cold [Unknown]
  - Weight increased [Unknown]
